FAERS Safety Report 12984370 (Version 4)
Quarter: 2017Q1

REPORT INFORMATION
  Report Type: Report from Study
  Country: None (occurrence: US)
  Receive Date: 20161129
  Receipt Date: 20170214
  Transmission Date: 20170428
  Serious: Yes (Other)
  Sender: FDA-Public Use
  Company Number: US-ABBVIE-16K-163-1790353-00

PATIENT
  Age: 20 Year
  Sex: Female
  Weight: 61.29 kg

DRUGS (1)
  1. HUMIRA [Suspect]
     Active Substance: ADALIMUMAB
     Indication: CROHN^S DISEASE
     Route: 058
     Dates: start: 20150310

REACTIONS (5)
  - Ovarian cyst [Not Recovered/Not Resolved]
  - Hydrometra [Unknown]
  - Nephrolithiasis [Recovered/Resolved]
  - Uterine cyst [Unknown]
  - Scan abdomen abnormal [Unknown]

NARRATIVE: CASE EVENT DATE: 201611
